FAERS Safety Report 4370831-5 (Version None)
Quarter: 2004Q2

REPORT INFORMATION
  Report Type: 
  Country: None (occurrence: None)
  Receive Date: 20040601
  Receipt Date: 20040519
  Transmission Date: 20050107
  Serious: Yes (Hospitalization)
  Sender: FDA-Public Use
  Company Number: 04P-062-0261692-00

PATIENT
  Age: 30 Year
  Sex: Female
  Weight: 60 kg

DRUGS (1)
  1. BIAXIN [Suspect]
     Indication: SUICIDE ATTEMPT
     Dosage: 250 MG, 10 IN ONCE, PER ORAL
     Route: 048
     Dates: start: 20040519, end: 20040519

REACTIONS (3)
  - INTENTIONAL OVERDOSE [None]
  - NAUSEA [None]
  - SUICIDE ATTEMPT [None]
